FAERS Safety Report 9757317 (Version 3)
Quarter: 2014Q2

REPORT INFORMATION
  Report Type: Report from Study
  Country: FR (occurrence: FR)
  Receive Date: 20131214
  Receipt Date: 20140623
  Transmission Date: 20141212
  Serious: Yes (Hospitalization)
  Sender: FDA-Public Use
  Company Number: FR-ROCHE-1318354

PATIENT
  Sex: Male
  Weight: 70 kg

DRUGS (6)
  1. RITUXIMAB [Suspect]
     Indication: CENTRAL NERVOUS SYSTEM LYMPHOMA
     Dosage: DATE OF LAST DOSE (730 MG WITH TOTAL CUMULATIVE DOSE : 1460 MG) OF RITUXIMAB BEFORE SAE OCCURRENCE :
     Route: 042
     Dates: start: 20131001
  2. METHOTREXATE [Suspect]
     Indication: CENTRAL NERVOUS SYSTEM LYMPHOMA
     Dosage: DATE OF LAST DOSE (5.5 G MG WITH TOTAL CUMULATIVE DOSE : 22 G) OF METHOTREXATE BEFORE SAE OCCURRENCE
     Route: 042
     Dates: start: 20131001
  3. CARMUSTINE [Suspect]
     Indication: CENTRAL NERVOUS SYSTEM LYMPHOMA
     Dosage: DATE OF LAST DOSE (200 MG WITH TOTAL CUMULATIVE DOSE : 400 MG) OF CARMUSTINE BEFORE SAE OCCURRENCE :
     Route: 042
     Dates: start: 20131003
  4. ETOPOSIDE [Suspect]
     Indication: CENTRAL NERVOUS SYSTEM LYMPHOMA
     Dosage: DATE OF LAST DOSE (200 MG WITH TOTAL CUMULATIVE DOSE : 400 MG) OF ETOPOSIDE BEFORE SAE OCCURRENCE :
     Route: 042
     Dates: start: 20131002
  5. PREDNISONE [Suspect]
     Indication: CENTRAL NERVOUS SYSTEM LYMPHOMA
     Dosage: LAST DOSE AS PER PROTOCOL 120 MG. CUMULATIVE DOSE AS PER PROTOCOL: 1200 MG
     Route: 048
     Dates: start: 20131001, end: 20131005
  6. PREDNISONE [Suspect]
     Route: 048
     Dates: start: 20131106, end: 20131110

REACTIONS (1)
  - Bone marrow failure [Recovered/Resolved]
